FAERS Safety Report 14480234 (Version 1)
Quarter: 2018Q1

REPORT INFORMATION
  Report Type: Spontaneous
  Country: GR (occurrence: GR)
  Receive Date: 20180202
  Receipt Date: 20180202
  Transmission Date: 20180509
  Serious: Yes (Death, Other)
  Sender: FDA-Public Use
  Company Number: GR-ARIAD-2017GR009150

PATIENT
  Age: 50 Year
  Sex: Male

DRUGS (12)
  1. BACTRIMEL [Concomitant]
     Active Substance: SULFAMETHOXAZOLE\TRIMETHOPRIM
     Dosage: UNK
     Route: 065
  2. NEUROBION                          /00091901/ [Concomitant]
     Active Substance: HYDROXOCOBALAMIN\PYRIDOXINE HYDROCHLORIDE\THIAMINE HYDROCHLORIDE
     Dosage: UNK
     Route: 065
  3. PONATINIB [Suspect]
     Active Substance: PONATINIB
     Indication: ACUTE BIPHENOTYPIC LEUKAEMIA
     Dosage: 45 MG, QD
     Route: 048
     Dates: start: 20170704, end: 20170727
  4. LOSEC [Concomitant]
     Active Substance: OMEPRAZOLE
     Dosage: UNK
     Route: 065
  5. TRANSAMINE [Concomitant]
     Dosage: UNK
     Route: 065
  6. PONATINIB [Suspect]
     Active Substance: PONATINIB
     Dosage: 30 MG, QD
     Route: 048
     Dates: start: 20170824, end: 20170905
  7. URSOFALK [Concomitant]
     Active Substance: URSODIOL
     Dosage: UNK
     Route: 065
  8. ZOVIRAX [Concomitant]
     Active Substance: ACYCLOVIR
     Dosage: UNK
     Route: 065
  9. FILICINE [Concomitant]
     Dosage: UNK
     Route: 065
  10. CIPROXIN                           /00697201/ [Concomitant]
     Active Substance: CIPROFLOXACIN
     Dosage: UNK
     Route: 065
  11. TROFOCARD [Concomitant]
     Dosage: UNK
     Route: 065
  12. ZYLAPOUR [Concomitant]
     Dosage: UNK
     Route: 065

REACTIONS (4)
  - Off label use [Unknown]
  - Acute biphenotypic leukaemia [Unknown]
  - Death [Fatal]
  - Hepatotoxicity [Recovering/Resolving]

NARRATIVE: CASE EVENT DATE: 20170704
